FAERS Safety Report 24360073 (Version 2)
Quarter: 2024Q4

REPORT INFORMATION
  Report Type: Spontaneous
  Country: CA (occurrence: CA)
  Receive Date: 20240925
  Receipt Date: 20241031
  Transmission Date: 20250115
  Serious: Yes (Other)
  Sender: PFIZER
  Company Number: CA-PFIZER INC-202300442944

PATIENT
  Age: 30 Year
  Sex: Male

DRUGS (3)
  1. RUXIENCE [Suspect]
     Active Substance: RITUXIMAB-PVVR
     Indication: Multiple sclerosis
     Dosage: 1000 MG, Q 2 WEEKS X 2 DOSES
     Route: 042
     Dates: start: 20240325, end: 20240408
  2. RUXIENCE [Suspect]
     Active Substance: RITUXIMAB-PVVR
     Dosage: 1000 MG, Q 2 WEEKS X 2 DOSES
     Route: 042
     Dates: end: 20240408
  3. RUXIENCE [Suspect]
     Active Substance: RITUXIMAB-PVVR
     Dosage: 1000 MG, DAY 1 RETREATMENT (1000 MG, EVERY 6 MONTHS)
     Route: 042
     Dates: start: 20241028

REACTIONS (3)
  - Multiple sclerosis [Unknown]
  - Condition aggravated [Unknown]
  - Off label use [Unknown]
